FAERS Safety Report 4382110-0 (Version None)
Quarter: 2004Q2

REPORT INFORMATION
  Report Type: 
  Country: None (occurrence: None)
  Receive Date: 20040603
  Receipt Date: 20030331
  Transmission Date: 20050107
  Serious: Yes (Hospitalization)
  Sender: FDA-Public Use
  Company Number: 200312951US

PATIENT
  Sex: Female

DRUGS (2)
  1. LOVENOX [Suspect]
     Indication: ATRIAL FIBRILLATION
     Dosage: 1 MG/KG BID
     Dates: end: 20030324
  2. WARFARIN SODIUM [Concomitant]

REACTIONS (4)
  - HAEMATOCRIT DECREASED [None]
  - HAEMOGLOBIN DECREASED [None]
  - MUSCLE HAEMORRHAGE [None]
  - PERONEAL NERVE PALSY [None]
